FAERS Safety Report 13689108 (Version 1)
Quarter: 2017Q2

REPORT INFORMATION
  Report Type: Spontaneous
  Country: US (occurrence: US)
  Receive Date: 20170624
  Receipt Date: 20170624
  Transmission Date: 20170830
  Serious: Yes (Disabling)
  Sender: FDA-Public Use
  Company Number: None

PATIENT
  Age: 47 Year
  Sex: Female
  Weight: 108 kg

DRUGS (4)
  1. CYTOMEL (THYROID REPLACEMENT) [Concomitant]
  2. WP THYROID [Concomitant]
     Active Substance: THYROID, PORCINE
  3. LORAZAPAM [Suspect]
     Active Substance: LORAZEPAM
     Indication: SLEEP DISORDER
     Dosage: ?          OTHER STRENGTH:MG;QUANTITY:4 TABLET(S);?
     Route: 048
  4. LORAZAPAM [Suspect]
     Active Substance: LORAZEPAM
     Indication: IRRITABLE BOWEL SYNDROME
     Dosage: ?          OTHER STRENGTH:MG;QUANTITY:4 TABLET(S);?
     Route: 048

REACTIONS (28)
  - Cognitive disorder [None]
  - Bone pain [None]
  - Vertigo [None]
  - Memory impairment [None]
  - Impaired driving ability [None]
  - Lethargy [None]
  - Dysphemia [None]
  - Myalgia [None]
  - Neuralgia [None]
  - Visual impairment [None]
  - Agoraphobia [None]
  - Emotional disorder [None]
  - Asthenia [None]
  - Derealisation [None]
  - Hypothyroidism [None]
  - Suicidal ideation [None]
  - Depression [None]
  - Gastric disorder [None]
  - Sleep apnoea syndrome [None]
  - Autoimmune thyroiditis [None]
  - Fibromyalgia [None]
  - Depersonalisation/derealisation disorder [None]
  - Withdrawal syndrome [None]
  - Fatigue [None]
  - Nightmare [None]
  - Tinnitus [None]
  - Vision blurred [None]
  - Loss of personal independence in daily activities [None]

NARRATIVE: CASE EVENT DATE: 20150201
